FAERS Safety Report 4352554-1 (Version None)
Quarter: 2004Q2

REPORT INFORMATION
  Report Type: 
  Country: None (occurrence: None)
  Receive Date: 20040503
  Receipt Date: 20040503
  Transmission Date: 20050107
  Serious: Yes (Life-Threatening, Hospitalization)
  Sender: FDA-Public Use
  Company Number: None

PATIENT
  Age: 7 Year
  Sex: Female
  Weight: 23.5 kg

DRUGS (1)
  1. TPN COMPOUNDING [Suspect]
     Dosage: 1700 ML/DAY
     Dates: start: 20040324

REACTIONS (2)
  - CONVULSION [None]
  - MEDICATION ERROR [None]
